FAERS Safety Report 5012404-7 (Version None)
Quarter: 2006Q2

REPORT INFORMATION
  Report Type: 
  Country: None (occurrence: None)
  Receive Date: 20060526
  Receipt Date: 20060508
  Transmission Date: 20061013
  Serious: Yes (Hospitalization, Other)
  Sender: FDA-Public Use
  Company Number: GB-ABBOTT-06P-167-0332657-00

PATIENT
  Age: 36 Year
  Sex: Female

DRUGS (2)
  1. ERYTHROMYCIN BASE [Suspect]
     Indication: PREMATURE RUPTURE OF MEMBRANES
     Route: 048
  2. BETAMETHASONE [Concomitant]
     Indication: DRUG USE FOR UNKNOWN INDICATION
     Route: 030

REACTIONS (9)
  - CAESAREAN SECTION [None]
  - CHILLS [None]
  - COLITIS PSEUDOMEMBRANOUS [None]
  - DRUG EXPOSURE DURING PREGNANCY [None]
  - HAEMOGLOBIN DECREASED [None]
  - HYPOTENSION [None]
  - INFLUENZA LIKE ILLNESS [None]
  - PREMATURE RUPTURE OF MEMBRANES [None]
  - WHITE BLOOD CELL COUNT INCREASED [None]
